FAERS Safety Report 11967152 (Version 2)
Quarter: 2016Q1

REPORT INFORMATION
  Report Type: Spontaneous
  Country: DE (occurrence: DE)
  Receive Date: 20160127
  Receipt Date: 20160328
  Transmission Date: 20160526
  Serious: Yes (Death, Hospitalization, Other)
  Sender: FDA-Public Use
  Company Number: DE-ELI_LILLY_AND_COMPANY-DE201601008388

PATIENT
  Age: 38 Year
  Sex: Male

DRUGS (7)
  1. ZYPADHERA [Suspect]
     Active Substance: OLANZAPINE PAMOATE
     Indication: SCHIZOPHRENIA
     Dosage: 300 MG, EVERY 2 WEEKS
     Route: 065
     Dates: start: 2015
  2. ZYPADHERA [Suspect]
     Active Substance: OLANZAPINE PAMOATE
     Dosage: 210 MG, EVERY 2 WEEKS
     Route: 065
  3. ORFIRIL [Concomitant]
     Active Substance: VALPROIC ACID
     Indication: IRRITABILITY
  4. SIMVASTATIN. [Concomitant]
     Active Substance: SIMVASTATIN
     Indication: PRODUCT USED FOR UNKNOWN INDICATION
     Dosage: UNK, UNKNOWN
     Route: 065
  5. ORFIRIL [Concomitant]
     Active Substance: VALPROIC ACID
     Indication: TENSION
     Dosage: 1500 MG, UNKNOWN
     Route: 065
  6. ORFIRIL [Concomitant]
     Active Substance: VALPROIC ACID
     Indication: AGGRESSION
  7. METFORMIN [Concomitant]
     Active Substance: METFORMIN HYDROCHLORIDE
     Indication: PRODUCT USED FOR UNKNOWN INDICATION
     Dosage: 500 MG, BID
     Route: 065

REACTIONS (12)
  - Apnoea [Fatal]
  - Syncope [Fatal]
  - Electrolyte imbalance [Unknown]
  - Extrapyramidal disorder [Unknown]
  - Restlessness [Unknown]
  - Blood pH decreased [Unknown]
  - Psychotic disorder [Unknown]
  - Death [Fatal]
  - Blood lactic acid increased [Unknown]
  - Blood glucose increased [Unknown]
  - Brain injury [Unknown]
  - Muscle spasms [Unknown]

NARRATIVE: CASE EVENT DATE: 20151129
